FAERS Safety Report 9940926 (Version 1)
Quarter: 2014Q1

REPORT INFORMATION
  Report Type: Spontaneous
  Country: US (occurrence: US)
  Receive Date: 20140303
  Receipt Date: 20140303
  Transmission Date: 20141002
  Serious: Yes (Hospitalization, Other)
  Sender: FDA-Public Use
  Company Number: US-ROXANE LABORATORIES, INC.-2014-RO-00329RO

PATIENT
  Age: 57 Year
  Sex: Female

DRUGS (6)
  1. LITHIUM CARBONATE [Suspect]
     Indication: BIPOLAR DISORDER
     Dosage: 1200 MG
     Route: 048
  2. HALDOL [Concomitant]
     Dosage: 20 MG
     Route: 065
  3. GEODON [Concomitant]
     Dosage: 160 MG
     Route: 065
  4. PROZAC [Concomitant]
     Dosage: 20 MG
     Route: 065
  5. SIMVASTATIN [Concomitant]
     Indication: BLOOD CHOLESTEROL INCREASED
     Dosage: 20 MG
     Route: 065
  6. TRAZODONE [Concomitant]
     Dosage: 100 MG
     Route: 065

REACTIONS (2)
  - Toxicity to various agents [Not Recovered/Not Resolved]
  - Diarrhoea [Unknown]
